FAERS Safety Report 7462217-1 (Version None)
Quarter: 2011Q2

REPORT INFORMATION
  Report Type: 
  Country: None (occurrence: None)
  Receive Date: 20110506
  Receipt Date: 20110502
  Transmission Date: 20111010
  Serious: Yes (Hospitalization)
  Sender: FDA-Public Use
  Company Number: AU-SANOFI-AVENTIS-2011SA026848

PATIENT
  Age: 59 Year
  Sex: Female

DRUGS (6)
  1. ACCURETIC [Concomitant]
     Indication: HYPERTENSION
  2. ASPIRIN [Concomitant]
  3. LEFLUNOMIDE [Suspect]
     Route: 048
     Dates: start: 20090722
  4. FOSAMAX [Concomitant]
  5. PREDNISONE [Concomitant]
  6. METHOTREXATE [Concomitant]
     Route: 065

REACTIONS (1)
  - ANEURYSM [None]
